FAERS Safety Report 12648343 (Version 1)
Quarter: 2016Q3

REPORT INFORMATION
  Report Type: Spontaneous
  Country: BR (occurrence: BR)
  Receive Date: 20160812
  Receipt Date: 20160812
  Transmission Date: 20161109
  Serious: Yes (Life-Threatening)
  Sender: FDA-Public Use
  Company Number: BR-FRESENIUS KABI-FK201605378

PATIENT
  Age: 20 Day
  Sex: Female

DRUGS (37)
  1. AMINOVEN INFANT 10% [Suspect]
     Active Substance: AMINO ACIDS
     Indication: PARENTERAL NUTRITION
     Route: 042
     Dates: start: 20160729
  2. AMINOVEN INFANT 10% [Suspect]
     Active Substance: AMINO ACIDS
     Route: 042
     Dates: start: 20160729
  3. GLYCOPHOS [Suspect]
     Active Substance: SODIUM GLYCEROPHOSPHATE ANHYDROUS
     Indication: PARENTERAL NUTRITION
     Route: 042
     Dates: start: 20160729
  4. CALCIUM GLUCONATE 10% [Suspect]
     Active Substance: CALCIUM GLUCONATE
     Route: 042
     Dates: start: 20160729
  5. CERNE 12 [Suspect]
     Active Substance: VITAMINS
     Route: 042
     Dates: start: 20160729
  6. SMOFLIPID [Suspect]
     Active Substance: FISH OIL\MEDIUM-CHAIN TRIGLYCERIDES\OLIVE OIL\SOYBEAN OIL
     Indication: PARENTERAL NUTRITION
     Route: 042
     Dates: start: 20160729
  7. SMOFLIPID [Suspect]
     Active Substance: FISH OIL\MEDIUM-CHAIN TRIGLYCERIDES\OLIVE OIL\SOYBEAN OIL
     Route: 042
     Dates: start: 20160729
  8. WATER FOR INJECTIONS [Suspect]
     Active Substance: WATER
     Indication: PARENTERAL NUTRITION
     Route: 042
     Dates: start: 20160729
  9. WATER FOR INJECTIONS [Suspect]
     Active Substance: WATER
     Route: 042
     Dates: start: 20160729
  10. CALCIUM GLUCONATE 10% [Suspect]
     Active Substance: CALCIUM GLUCONATE
     Indication: PARENTERAL NUTRITION
     Route: 042
     Dates: start: 20160729
  11. CALCIUM GLUCONATE 10% [Suspect]
     Active Substance: CALCIUM GLUCONATE
     Route: 042
     Dates: start: 20160729
  12. MEROPENEM. [Concomitant]
     Active Substance: MEROPENEM
     Dates: start: 20160719
  13. OMEPRAZOLE. [Concomitant]
     Active Substance: OMEPRAZOLE
     Dates: start: 20160722
  14. WATER FOR INJECTIONS [Suspect]
     Active Substance: WATER
     Route: 042
     Dates: start: 20160729
  15. AMINOVEN INFANT 10% [Suspect]
     Active Substance: AMINO ACIDS
     Route: 042
     Dates: start: 20160729
  16. GLUCOSE 50% [Suspect]
     Active Substance: DEXTROSE
     Route: 042
     Dates: start: 20160729
  17. FOSFORO ORGANICO [Suspect]
     Active Substance: PHOSPHORUS
     Indication: PARENTERAL NUTRITION
     Route: 042
     Dates: start: 20160729
  18. WATER FOR INJECTIONS [Suspect]
     Active Substance: WATER
     Route: 042
     Dates: start: 20160729
  19. AMINOVEN INFANT 10% [Suspect]
     Active Substance: AMINO ACIDS
     Route: 042
     Dates: start: 20160729
  20. CERNE 12 [Suspect]
     Active Substance: VITAMINS
     Indication: PARENTERAL NUTRITION
     Route: 042
     Dates: start: 20160729
  21. CLOREDO DE POTASSIO [Suspect]
     Active Substance: POTASSIUM CHLORIDE
     Indication: PARENTERAL NUTRITION
     Route: 042
     Dates: start: 20160729
  22. SULVATO DE MAGNESIO 10 [Suspect]
     Active Substance: MAGNESIUM SULFATE
     Indication: PARENTERAL NUTRITION
     Route: 042
     Dates: start: 20160729
  23. CAFFEINE CITRATE. [Concomitant]
     Active Substance: CAFFEINE CITRATE
  24. SMOFLIPID [Suspect]
     Active Substance: FISH OIL\MEDIUM-CHAIN TRIGLYCERIDES\OLIVE OIL\SOYBEAN OIL
     Route: 042
     Dates: start: 20160729
  25. GLUCOSE 50% [Suspect]
     Active Substance: DEXTROSE
     Route: 042
     Dates: start: 20160729
  26. GLUCOSE 50% [Suspect]
     Active Substance: DEXTROSE
     Route: 042
     Dates: start: 20160729
  27. OLIGOELEMENTO INFANTIL [Suspect]
     Active Substance: MINERALS
     Indication: PARENTERAL NUTRITION
     Route: 042
     Dates: start: 20160729
  28. DIPYRONE [Concomitant]
     Active Substance: DIPYRONE
     Dates: start: 20160723
  29. GLUCOSE 50% [Suspect]
     Active Substance: DEXTROSE
     Indication: PARENTERAL NUTRITION
     Route: 042
     Dates: start: 20160729
  30. AMPHOTERICIN B. [Concomitant]
     Active Substance: AMPHOTERICIN B
     Dates: start: 20160723
  31. SMOFLIPID [Suspect]
     Active Substance: FISH OIL\MEDIUM-CHAIN TRIGLYCERIDES\OLIVE OIL\SOYBEAN OIL
     Route: 042
     Dates: start: 20160729
  32. CALCIUM GLUCONATE 10% [Suspect]
     Active Substance: CALCIUM GLUCONATE
     Route: 042
     Dates: start: 20160729
  33. SULVATO DE ZINCO 200 [Suspect]
     Active Substance: ZINC SULFATE\ZINC SULFATE ANHYDROUS
     Indication: PARENTERAL NUTRITION
     Route: 042
     Dates: start: 20160729
  34. SODIUM CHLORIDE. [Concomitant]
     Active Substance: SODIUM CHLORIDE
     Dates: start: 20160724
  35. VANCOMYCIN [Concomitant]
     Active Substance: VANCOMYCIN
     Dates: start: 20160720
  36. CLOREDO DE SODIO [Suspect]
     Active Substance: SODIUM CHLORIDE
     Indication: PARENTERAL NUTRITION
     Route: 042
     Dates: start: 20160729
  37. PHYTOMENADIONE [Concomitant]
     Active Substance: PHYTONADIONE
     Dates: start: 20160729, end: 20160729

REACTIONS (2)
  - Neonatal hyponatraemia [None]
  - Hypernatraemia [Recovered/Resolved]

NARRATIVE: CASE EVENT DATE: 20160801
